FAERS Safety Report 9285328 (Version 1)
Quarter: 2013Q2

REPORT INFORMATION
  Report Type: Spontaneous
  Country: US (occurrence: None)
  Receive Date: 20130507
  Receipt Date: 20130507
  Transmission Date: 20140414
  Serious: Yes (Other)
  Sender: FDA-Public Use
  Company Number: 2013SA044397

PATIENT
  Age: 24 Year
  Sex: Female

DRUGS (1)
  1. ICY HOT [Suspect]
     Indication: BACK PAIN
     Dates: start: 20130425

REACTIONS (1)
  - Application site burn [None]
